FAERS Safety Report 6200847-5 (Version None)
Quarter: 2009Q2

REPORT INFORMATION
  Report Type: 
  Country: None (occurrence: None)
  Receive Date: 20090522
  Receipt Date: 20081006
  Transmission Date: 20091009
  Serious: No
  Sender: FDA-Public Use
  Company Number: US-ALEXION-A200800238

PATIENT
  Sex: Female
  Weight: 77.098 kg

DRUGS (10)
  1. SOLIRIS [Suspect]
     Indication: PAROXYSMAL NOCTURNAL HAEMOGLOBINURIA
     Dosage: 600 MG, QWK
     Route: 042
     Dates: start: 20080717, end: 20080807
  2. SOLIRIS [Suspect]
     Dosage: 900 MG, Q2WK
     Route: 042
     Dates: start: 20080814
  3. ULTRAM [Concomitant]
     Indication: ARTHRITIS
     Dosage: 50 MG, BID
     Route: 048
  4. LABETALOL HCL [Concomitant]
     Indication: BLOOD PRESSURE
     Dosage: 200 MG, BID
     Route: 048
  5. CARDURA                            /00639301/ [Concomitant]
     Indication: BLOOD PRESSURE
     Dosage: 1 MG, BID
     Route: 048
  6. COZAAR [Concomitant]
     Indication: CARDIAC DISORDER
     Dosage: 25 MG, BID
     Route: 048
  7. DIGOXIN [Concomitant]
     Indication: CARDIAC DISORDER
     Dosage: 25 MG, 4 TIMES/WEEK
     Route: 048
  8. URSO FORTE [Concomitant]
     Dosage: 500 MG, BID
     Route: 048
  9. LASIX [Concomitant]
     Indication: FLUID RETENTION
     Dosage: 20 MG, QD
     Route: 048
     Dates: start: 20080911
  10. POTASSIUM CHLORIDE [Concomitant]
     Dosage: 20 MG, QD
     Route: 048

REACTIONS (5)
  - BACK PAIN [None]
  - DEPRESSED MOOD [None]
  - FLUID RETENTION [None]
  - HAEMOGLOBIN DECREASED [None]
  - HEADACHE [None]
